FAERS Safety Report 10029605 (Version 2)
Quarter: 2014Q1

REPORT INFORMATION
  Report Type: Spontaneous
  Country: FR (occurrence: FR)
  Receive Date: 20140322
  Receipt Date: 20140322
  Transmission Date: 20141002
  Serious: Yes (Other)
  Sender: FDA-Public Use
  Company Number: FR-ACCORD-022596

PATIENT
  Age: 31 Year
  Sex: Female

DRUGS (6)
  1. TACROLIMUS [Suspect]
     Indication: IMMUNOSUPPRESSION
  2. MYCOPHENOLIC ACID [Suspect]
     Indication: IMMUNOSUPPRESSION
     Dosage: INITIALLY PATIENT HAD 720 MG X 2, 500 MG X 3, 500 MG X 2, 250 MG X 2
  3. SULFAMETHOXAZOLE/TRIMETHOPRIM [Suspect]
     Indication: PRODUCT USED FOR UNKNOWN INDICATION
  4. VALGANCICLOVIR/VALGANCICLOVIR HYDROCHLORIDE [Suspect]
     Indication: PRODUCT USED FOR UNKNOWN INDICATION
  5. PREDNISONE/PREDNISONE ACETATE [Suspect]
     Indication: IMMUNOSUPPRESSION
  6. RITUXIMAB [Suspect]
     Indication: PRODUCT USED FOR UNKNOWN INDICATION
     Dosage: ONE INFUSION

REACTIONS (2)
  - Pyelonephritis [Unknown]
  - Neutropenia [Not Recovered/Not Resolved]
